FAERS Safety Report 14128299 (Version 1)
Quarter: 2017Q4

REPORT INFORMATION
  Report Type: Spontaneous
  Country: US (occurrence: US)
  Receive Date: 20171025
  Receipt Date: 20171025
  Transmission Date: 20180321
  Serious: Yes (Other)
  Sender: FDA-Public Use
  Company Number: None

PATIENT
  Age: 75 Year
  Sex: Female
  Weight: 75.6 kg

DRUGS (1)
  1. DILTIAZEM HCI EXTENDED RELEASE [Suspect]
     Active Substance: DILTIAZEM HYDROCHLORIDE
     Indication: HYPERTENSION
     Dosage: ?          QUANTITY:1 CAPSULE(S);?
     Route: 048
     Dates: end: 20140101

REACTIONS (1)
  - Alopecia [None]

NARRATIVE: CASE EVENT DATE: 20170101
